FAERS Safety Report 6010898-1 (Version None)
Quarter: 2008Q4

REPORT INFORMATION
  Report Type: 
  Country: None (occurrence: None)
  Receive Date: 20081217
  Receipt Date: 20081217
  Transmission Date: 20090506
  Serious: Yes (Life-Threatening)
  Sender: FDA-Public Use
  Company Number: None

PATIENT
  Sex: Female
  Weight: 58.0604 kg

DRUGS (1)
  1. ALDENDRONATE 70MG, BARR LABORATORIES [Suspect]
     Indication: OSTEOPENIA
     Dosage: 1 TABLET WEEKLY
     Dates: start: 20081004

REACTIONS (5)
  - ABDOMINAL PAIN UPPER [None]
  - DRUG INEFFECTIVE [None]
  - GASTROINTESTINAL PAIN [None]
  - MIGRAINE [None]
  - PRODUCT QUALITY ISSUE [None]
